FAERS Safety Report 9733108 (Version 1)
Quarter: 2013Q4

REPORT INFORMATION
  Report Type: Spontaneous
  Country: US (occurrence: US)
  Receive Date: 20131205
  Receipt Date: 20131205
  Transmission Date: 20140711
  Serious: Yes (Hospitalization, Other)
  Sender: FDA-Public Use
  Company Number: PHHY2013US137103

PATIENT
  Age: 48 Year
  Sex: Male

DRUGS (2)
  1. PARACETAMOL [Suspect]
     Indication: PAIN
     Route: 042
  2. PHENOBARBITAL [Interacting]
     Indication: CONVULSION

REACTIONS (11)
  - Colitis [Recovered/Resolved]
  - Abdominal pain [Recovered/Resolved]
  - Drug-induced liver injury [Recovered/Resolved]
  - Jaundice [Recovered/Resolved]
  - Unresponsive to stimuli [Recovered/Resolved]
  - Bradycardia [Recovered/Resolved]
  - Hypotension [Recovered/Resolved]
  - Intentional overdose [Recovered/Resolved]
  - Liver function test abnormal [Recovered/Resolved]
  - Cholelithiasis [Recovered/Resolved]
  - Drug interaction [Unknown]
